FAERS Safety Report 7113337-2 (Version None)
Quarter: 2010Q4

REPORT INFORMATION
  Report Type: 
  Country: None (occurrence: None)
  Receive Date: 20101119
  Receipt Date: 20101110
  Transmission Date: 20110411
  Serious: Yes (Other)
  Sender: FDA-Public Use
  Company Number: JP-ASTRAZENECA-2010SE54088

PATIENT
  Age: 72 Year
  Sex: Male

DRUGS (1)
  1. CASODEX [Suspect]
     Route: 048
     Dates: start: 20100120, end: 20100316

REACTIONS (1)
  - LIVER DISORDER [None]
